FAERS Safety Report 20247421 (Version 1)
Quarter: 2021Q4

REPORT INFORMATION
  Report Type: Spontaneous
  Country: US (occurrence: None)
  Receive Date: 20211228
  Receipt Date: 20211228
  Transmission Date: 20220303
  Serious: Yes (Other)
  Sender: FDA-Public Use
  Company Number: None

PATIENT
  Age: 73 Year
  Sex: Female
  Weight: 110 kg

DRUGS (2)
  1. HIZENTRA [Suspect]
     Active Substance: HUMAN IMMUNOGLOBULIN G
     Indication: Immunodeficiency common variable
     Dosage: FREQUENCY : EVERY OTHER WEEK;?
     Route: 058
     Dates: start: 20190620
  2. HIZENTRA [Suspect]
     Active Substance: HUMAN IMMUNOGLOBULIN G
     Dates: start: 20190620

REACTIONS (8)
  - Recalled product [None]
  - Adverse reaction [None]
  - Injection site pruritus [None]
  - Injection site erythema [None]
  - Injection site warmth [None]
  - Injection site urticaria [None]
  - Injection site irritation [None]
  - Pain in extremity [None]

NARRATIVE: CASE EVENT DATE: 20211112
